FAERS Safety Report 5607549-4 (Version None)
Quarter: 2008Q1

REPORT INFORMATION
  Report Type: 
  Country: None (occurrence: None)
  Receive Date: 20080130
  Receipt Date: 20080122
  Transmission Date: 20080703
  Serious: Yes (Other)
  Sender: FDA-Public Use
  Company Number: JP-BAYER-200711031BYL

PATIENT
  Age: 57 Year
  Sex: Female
  Weight: 74 kg

DRUGS (6)
  1. AVELOX [Suspect]
     Indication: BRONCHITIS
     Dosage: TOTAL DAILY DOSE: 400 MG  UNIT DOSE: 400 MG
     Route: 048
     Dates: start: 20071209, end: 20071209
  2. ASVERIN [Concomitant]
     Indication: UPPER RESPIRATORY TRACT INFLAMMATION
     Dosage: TOTAL DAILY DOSE: 120 MG  UNIT DOSE: 20 MG
     Route: 048
     Dates: start: 20071209, end: 20071209
  3. CISDYNE [Concomitant]
     Indication: BRONCHITIS
     Dosage: TOTAL DAILY DOSE: 1500 MG  UNIT DOSE: 250 MG
     Route: 048
     Dates: start: 20071209, end: 20071209
  4. CRESTOR [Concomitant]
     Indication: HYPERCHOLESTEROLAEMIA
     Dosage: TOTAL DAILY DOSE: 2.5 MG  UNIT DOSE: 2.5 MG
     Route: 048
     Dates: start: 20070601
  5. AMLODIPINE BESYLATE [Concomitant]
     Indication: HYPERTENSION
     Dosage: TOTAL DAILY DOSE: 5 MG  UNIT DOSE: 5 MG
     Route: 048
     Dates: start: 20060905
  6. SAMNANT [Concomitant]
     Indication: BRONCHITIS
     Dosage: TOTAL DAILY DOSE: 600 MG  UNIT DOSE: 200 MG
     Route: 048
     Dates: start: 20071209, end: 20071209

REACTIONS (4)
  - ANAPHYLACTOID REACTION [None]
  - DYSPNOEA [None]
  - LARYNGEAL OEDEMA [None]
  - SNEEZING [None]
